FAERS Safety Report 8227387-6 (Version None)
Quarter: 2012Q1

REPORT INFORMATION
  Report Type: 
  Country: None (occurrence: None)
  Receive Date: 20120322
  Receipt Date: 20120315
  Transmission Date: 20120608
  Serious: Yes (Other)
  Sender: FDA-Public Use
  Company Number: CA-GENZYME-CAMP-1002147

PATIENT
  Sex: Male

DRUGS (7)
  1. ALEMTUZUMAB [Suspect]
     Indication: MULTIPLE SCLEROSIS
     Dosage: 12 MG, QD
     Route: 042
     Dates: start: 20110628, end: 20110630
  2. ALTACE [Concomitant]
     Indication: HYPERTENSION
     Dosage: 10 MG, QD
     Route: 048
  3. ALEMTUZUMAB [Suspect]
     Dosage: 12 MG, QD
     Route: 042
     Dates: start: 20100309, end: 20100311
  4. ALEMTUZUMAB [Suspect]
     Dosage: 12 MG, QD
     Route: 042
     Dates: start: 20090309, end: 20090313
  5. METHYLPREDNISOLONE [Concomitant]
     Dosage: 1000 MG, QD
     Route: 042
     Dates: start: 20100309, end: 20100311
  6. METHYLPREDNISOLONE [Concomitant]
     Dosage: 1000 MG, QD
     Route: 042
     Dates: start: 20110628, end: 20110630
  7. METHYLPREDNISOLONE [Concomitant]
     Indication: MULTIPLE SCLEROSIS
     Dosage: 1000 MG, QD
     Route: 042
     Dates: start: 20090309, end: 20090313

REACTIONS (1)
  - ATRIAL FIBRILLATION [None]
